FAERS Safety Report 7065927-3 (Version None)
Quarter: 2010Q4

REPORT INFORMATION
  Report Type: 
  Country: None (occurrence: None)
  Receive Date: 20101027
  Receipt Date: 20101021
  Transmission Date: 20110411
  Serious: Yes (Hospitalization)
  Sender: FDA-Public Use
  Company Number: US-GILEAD-2010-0031205

PATIENT
  Sex: Female
  Weight: 63.56 kg

DRUGS (13)
  1. LETAIRIS [Suspect]
     Indication: PULMONARY ARTERIAL HYPERTENSION
     Route: 048
     Dates: start: 20100430
  2. FLOLAN [Concomitant]
  3. ALBUTEROL [Concomitant]
  4. VITAMIN D [Concomitant]
  5. MULTI-VITAMIN [Concomitant]
  6. FOSAMAX [Concomitant]
  7. PERCOCET [Concomitant]
  8. PREDNISONE [Concomitant]
  9. PROTONIX [Concomitant]
  10. FLUTICASONE PROPIONATE [Concomitant]
  11. CALCIUM/VITAMIN D [Concomitant]
  12. AZATHIOPRINE [Concomitant]
  13. CLARITIN [Concomitant]

REACTIONS (1)
  - CATHETERISATION CARDIAC [None]
